FAERS Safety Report 13887757 (Version 6)
Quarter: 2017Q4

REPORT INFORMATION
  Report Type: Report from Study
  Country: US (occurrence: US)
  Receive Date: 20170821
  Receipt Date: 20171109
  Transmission Date: 20180320
  Serious: Yes (Hospitalization)
  Sender: FDA-Public Use
  Company Number: US-ACTELION-A-US2017-157483

PATIENT
  Age: 52 Year
  Sex: Female
  Weight: 111.11 kg

DRUGS (4)
  1. OXYGEN. [Concomitant]
     Active Substance: OXYGEN
     Dosage: 15 L/MIN, UNK
     Route: 065
  2. AMLODIPINE [Concomitant]
     Active Substance: AMLODIPINE BESYLATE
  3. VELETRI [Suspect]
     Active Substance: EPOPROSTENOL
     Dosage: 10 NG/KG, PER MIN
     Route: 042
  4. VELETRI [Suspect]
     Active Substance: EPOPROSTENOL
     Indication: PULMONARY ARTERIAL HYPERTENSION
     Dosage: 7 NG/KG, PER MIN
     Route: 042
     Dates: start: 201707

REACTIONS (12)
  - Chronic obstructive pulmonary disease [Unknown]
  - Oxygen therapy [Unknown]
  - Oxygen saturation decreased [Unknown]
  - Fluid overload [Unknown]
  - Catheter site pruritus [Unknown]
  - Diarrhoea [Recovered/Resolved]
  - Cardiac failure [Unknown]
  - Dyspnoea exertional [Unknown]
  - Hypoxia [Unknown]
  - Malaise [Unknown]
  - Pain in jaw [Unknown]
  - Headache [Unknown]

NARRATIVE: CASE EVENT DATE: 201707
